FAERS Safety Report 7139395-7 (Version None)
Quarter: 2010Q4

REPORT INFORMATION
  Report Type: 
  Country: None (occurrence: None)
  Receive Date: 20101206
  Receipt Date: 20101125
  Transmission Date: 20110411
  Serious: Yes (Congenital Anomaly)
  Sender: FDA-Public Use
  Company Number: JP-ASTRAZENECA-2010SE46925

PATIENT
  Sex: Male
  Weight: 3 kg

DRUGS (4)
  1. ATACAND HCT [Suspect]
     Dosage: 16/12.5 MG/ DAILY
     Route: 064
     Dates: end: 20090720
  2. TORASEMIDE [Concomitant]
     Route: 064
     Dates: end: 20090720
  3. METOPROLOL SUCCINATE [Concomitant]
     Route: 064
     Dates: end: 20090720
  4. AMLODIPINE [Concomitant]
     Route: 064

REACTIONS (4)
  - CRYPTORCHISM [None]
  - RENAL FAILURE CHRONIC [None]
  - SKULL MALFORMATION [None]
  - TALIPES [None]
